FAERS Safety Report 13668683 (Version 1)
Quarter: 2017Q2

REPORT INFORMATION
  Report Type: Spontaneous
  Country: FR (occurrence: FR)
  Receive Date: 20170620
  Receipt Date: 20170620
  Transmission Date: 20170830
  Serious: Yes (Hospitalization)
  Sender: FDA-Public Use
  Company Number: FR-BEH-2017081353

PATIENT
  Age: 55 Year
  Sex: Female

DRUGS (1)
  1. PRIVIGEN [Suspect]
     Active Substance: HUMAN IMMUNOGLOBULIN G
     Indication: MENINGORADICULITIS
     Dosage: UNK
     Route: 042
     Dates: start: 201510

REACTIONS (4)
  - Thrombophlebitis [Unknown]
  - Peripheral artery thrombosis [Unknown]
  - Pelvic venous thrombosis [Unknown]
  - Phlebitis [Unknown]

NARRATIVE: CASE EVENT DATE: 20170428
